FAERS Safety Report 14307102 (Version 2)
Quarter: 2018Q1

REPORT INFORMATION
  Report Type: Report from Study
  Country: CZ (occurrence: CZ)
  Receive Date: 20171220
  Receipt Date: 20180102
  Transmission Date: 20180509
  Serious: Yes (Hospitalization)
  Sender: FDA-Public Use
  Company Number: CZ-ROCHE-2037745

PATIENT
  Age: 74 Year
  Sex: Female

DRUGS (14)
  1. SIOFOR [Concomitant]
     Active Substance: METFORMIN HYDROCHLORIDE
     Indication: DIABETES MELLITUS
     Route: 065
     Dates: start: 2008
  2. TRASTUZUMAB EMTANSINE [Suspect]
     Active Substance: ADO-TRASTUZUMAB EMTANSINE
     Indication: BREAST CANCER
     Dosage: LAST DOSE PRIOR TO SAE 14/NOV/2017 (385.2 MG)
     Route: 042
     Dates: start: 20160520
  3. TELMISARTAN. [Concomitant]
     Active Substance: TELMISARTAN
     Indication: HYPERTENSION
     Route: 065
     Dates: start: 20130830
  4. INDAP [Concomitant]
     Indication: HYPERTENSION
     Route: 065
     Dates: start: 20130716
  5. MILURIT [Concomitant]
     Active Substance: ALLOPURINOL
     Indication: SYNOVITIS
     Route: 065
     Dates: start: 20140723
  6. SORBIFER DURULES [Concomitant]
     Active Substance: FERROUS SULFATE
     Dosage: PROPHYLAXIS - SUBSTITUTION OF FE
     Route: 065
     Dates: start: 20160125
  7. DETRALEX [Concomitant]
     Active Substance: DIOSMIN\HESPERIDIN
     Indication: NEUROPATHY PERIPHERAL
     Route: 065
     Dates: start: 20160810
  8. AERIUS (CZECH REPUBLIC) [Concomitant]
     Indication: PRURITUS
     Route: 065
     Dates: start: 2012
  9. HYPNOGEN [Concomitant]
     Active Substance: ZOLPIDEM\ZOLPIDEM TARTRATE
     Indication: INSOMNIA
     Route: 065
     Dates: start: 20130903
  10. EUTHYROX [Concomitant]
     Active Substance: LEVOTHYROXINE SODIUM
     Indication: HYPOTHYROIDISM
     Route: 065
     Dates: start: 2008
  11. MAGNOSOLV [Concomitant]
     Indication: HYPOMAGNESAEMIA
     Route: 065
     Dates: start: 20130411
  12. EGILOK [Concomitant]
     Active Substance: METOPROLOL TARTRATE
     Indication: HYPERTENSION
     Route: 065
     Dates: start: 20140930
  13. BELOGENT [Concomitant]
     Indication: RASH
     Route: 065
     Dates: start: 20160910
  14. RILMENIDINE [Concomitant]
     Active Substance: RILMENIDINE
     Indication: HYPERTENSION
     Route: 065
     Dates: start: 201304

REACTIONS (1)
  - Dermatitis infected [Recovered/Resolved]

NARRATIVE: CASE EVENT DATE: 20171128
